FAERS Safety Report 14922361 (Version 2)
Quarter: 2019Q2

REPORT INFORMATION
  Report Type: Spontaneous
  Country: US (occurrence: US)
  Receive Date: 20180522
  Receipt Date: 20190501
  Transmission Date: 20190711
  Serious: No
  Sender: FDA-Public Use
  Company Number: US-PFIZER INC-2018146274

PATIENT
  Age: 82 Year
  Sex: Female
  Weight: 51 kg

DRUGS (3)
  1. INLYTA [Suspect]
     Active Substance: AXITINIB
     Indication: ADENOID CYSTIC CARCINOMA
     Dosage: 5 MG, 2X/DAY
     Route: 048
     Dates: start: 20180417
  2. LISINOPRIL. [Concomitant]
     Active Substance: LISINOPRIL
     Indication: HYPERTENSION
     Dosage: 10 MG, 1X/DAY
     Route: 048
  3. LEVOTHYROXINE. [Concomitant]
     Active Substance: LEVOTHYROXINE
     Indication: THYROID DISORDER
     Dosage: 35 UG, 1X/DAY
     Route: 048

REACTIONS (3)
  - Hypoacusis [Not Recovered/Not Resolved]
  - Ear disorder [Not Recovered/Not Resolved]
  - Product use in unapproved indication [Unknown]

NARRATIVE: CASE EVENT DATE: 2018
